FAERS Safety Report 6280453-7 (Version None)
Quarter: 2009Q3

REPORT INFORMATION
  Report Type: 
  Country: None (occurrence: None)
  Receive Date: 20090724
  Receipt Date: 20080912
  Transmission Date: 20100115
  Serious: Yes (Hospitalization)
  Sender: FDA-Public Use
  Company Number: A0732029A

PATIENT
  Age: 59 Year
  Sex: Male
  Weight: 68.2 kg

DRUGS (5)
  1. AVANDIA [Suspect]
     Dosage: 4MG PER DAY
     Route: 048
     Dates: start: 20040101, end: 20060101
  2. METFORMIN HCL [Concomitant]
     Dates: start: 20050101
  3. STARLIX [Concomitant]
     Dates: start: 20050101
  4. LANTUS [Concomitant]
     Dosage: 20CC PER DAY
     Dates: start: 20040101
  5. GLUCOTROL [Concomitant]

REACTIONS (1)
  - CEREBROVASCULAR ACCIDENT [None]
